FAERS Safety Report 6031908-1 (Version None)
Quarter: 2008Q4

REPORT INFORMATION
  Report Type: 
  Country: None (occurrence: None)
  Receive Date: 20081224
  Receipt Date: 20080908
  Transmission Date: 20090506
  Serious: No
  Sender: FDA-Public Use
  Company Number: 2008PV036650

PATIENT
  Age: 61 Year
  Sex: Female

DRUGS (5)
  1. SYMLIN [Suspect]
     Indication: TYPE 2 DIABETES MELLITUS
     Dosage: 72 MCG; QAM; SC, 90 MCG; QPM; SC, 72 MCG; SC
     Route: 058
     Dates: start: 20060101, end: 20070101
  2. SYMLIN [Suspect]
     Indication: TYPE 2 DIABETES MELLITUS
     Dosage: 72 MCG; QAM; SC, 90 MCG; QPM; SC, 72 MCG; SC
     Route: 058
     Dates: start: 20080201
  3. SYMLIN [Suspect]
     Indication: TYPE 2 DIABETES MELLITUS
     Dosage: 72 MCG; QAM; SC, 90 MCG; QPM; SC, 72 MCG; SC
     Route: 058
     Dates: start: 20080201
  4. LANTUS [Concomitant]
  5. NOVOLOG [Concomitant]

REACTIONS (3)
  - BLOOD GLUCOSE DECREASED [None]
  - DIARRHOEA [None]
  - GASTRIC DISORDER [None]
